FAERS Safety Report 8523700-0 (Version None)
Quarter: 2012Q3

REPORT INFORMATION
  Report Type: 
  Country: None (occurrence: None)
  Receive Date: 20120720
  Receipt Date: 20120710
  Transmission Date: 20120928
  Serious: Yes (Hospitalization, Other)
  Sender: FDA-Public Use
  Company Number: US-JNJFOC-20120607388

PATIENT
  Sex: Male

DRUGS (7)
  1. REMICADE [Suspect]
     Route: 042
     Dates: start: 20070305
  2. REMICADE [Suspect]
     Indication: PSORIATIC ARTHROPATHY
     Route: 042
  3. REMICADE [Suspect]
     Dosage: ABOUT 5 YEARS AGO
     Route: 042
     Dates: end: 20120319
  4. SIMVASTATIN [Concomitant]
     Indication: BLOOD CHOLESTEROL
     Dosage: 10 (UNITS UNSPECIFIED)
     Route: 048
  5. FISH OIL [Concomitant]
     Route: 048
  6. PRILOSEC [Concomitant]
     Indication: GASTROOESOPHAGEAL REFLUX DISEASE
     Route: 048
  7. MULTI-VITAMINS [Concomitant]
     Route: 065

REACTIONS (2)
  - STAPHYLOCOCCAL INFECTION [None]
  - DRUG EFFECT DECREASED [None]
